FAERS Safety Report 19249434 (Version 2)
Quarter: 2021Q3

REPORT INFORMATION
  Report Type: Spontaneous
  Country: JP (occurrence: JP)
  Receive Date: 20210512
  Receipt Date: 20210714
  Transmission Date: 20211014
  Serious: Yes (Hospitalization)
  Sender: FDA-Public Use
  Company Number: JP-ASTRAZENECA-2021A413749

PATIENT
  Age: 91 Year
  Sex: Male
  Weight: 47 kg

DRUGS (7)
  1. GEFITINIB. [Suspect]
     Active Substance: GEFITINIB
     Indication: LUNG ADENOCARCINOMA
     Route: 048
     Dates: start: 20210115, end: 20210506
  2. FAMOTIDINE OD [Concomitant]
     Active Substance: FAMOTIDINE
     Dates: start: 20210114
  3. GEFITINIB. [Suspect]
     Active Substance: GEFITINIB
     Indication: LUNG CARCINOMA CELL TYPE UNSPECIFIED RECURRENT
     Route: 048
     Dates: start: 20210115, end: 20210506
  4. SILODOSIN OD [Concomitant]
     Indication: DYSURIA
     Route: 048
     Dates: start: 20210113
  5. OLOPATADINE HYDROCHLORIDE. [Concomitant]
     Active Substance: OLOPATADINE HYDROCHLORIDE
     Indication: PRURITUS
     Dates: start: 20210405
  6. GEFITINIB. [Suspect]
     Active Substance: GEFITINIB
     Indication: LUNG CARCINOMA CELL TYPE UNSPECIFIED RECURRENT
     Route: 048
     Dates: start: 20210115, end: 20210506
  7. MINOCYCLINE HYDROCHLORIDE. [Concomitant]
     Active Substance: MINOCYCLINE HYDROCHLORIDE
     Indication: PROPHYLAXIS
     Route: 048
     Dates: start: 20210116

REACTIONS (4)
  - Granulocyte count decreased [Recovering/Resolving]
  - Diarrhoea [Recovered/Resolved]
  - Platelet count decreased [Not Recovered/Not Resolved]
  - Hepatic function abnormal [Recovered/Resolved]

NARRATIVE: CASE EVENT DATE: 20210506
